FAERS Safety Report 13634520 (Version 1)
Quarter: 2017Q2

REPORT INFORMATION
  Report Type: Spontaneous
  Country: DE (occurrence: DE)
  Receive Date: 20170609
  Receipt Date: 20170609
  Transmission Date: 20170830
  Serious: Yes (Other)
  Sender: FDA-Public Use
  Company Number: DE-BRISTOL-MYERS SQUIBB COMPANY-BMS-2017-043844

PATIENT
  Age: 55 Year
  Sex: Male
  Weight: 76 kg

DRUGS (2)
  1. AVASTIN [Suspect]
     Active Substance: BEVACIZUMAB
     Indication: RENAL CELL CARCINOMA
     Dosage: 750 MG, UNK
     Route: 042
     Dates: start: 20170407
  2. OPDIVO [Suspect]
     Active Substance: NIVOLUMAB
     Indication: RENAL CELL CARCINOMA
     Dosage: 3 MG/KG, UNK
     Route: 042
     Dates: start: 20150723

REACTIONS (6)
  - Arthritis [Recovering/Resolving]
  - Antinuclear antibody [Unknown]
  - Malignant neoplasm progression [Unknown]
  - Colitis [Recovering/Resolving]
  - Antinuclear antibody increased [Unknown]
  - Arthralgia [Recovering/Resolving]

NARRATIVE: CASE EVENT DATE: 20170510
